FAERS Safety Report 7751718-4 (Version None)
Quarter: 2011Q3

REPORT INFORMATION
  Report Type: 
  Country: None (occurrence: None)
  Receive Date: 20110915
  Receipt Date: 20110908
  Transmission Date: 20111222
  Serious: Yes (Other)
  Sender: FDA-Public Use
  Company Number: US-BIOGENIDEC-2011BI032858

PATIENT
  Age: 55 Year
  Sex: Female

DRUGS (15)
  1. POTASSIUM [Concomitant]
  2. XYZAL [Concomitant]
  3. GABAPENTIN [Concomitant]
  4. LAMOTRIGINE [Concomitant]
  5. TRIAMTERENE AND HYDROCHLOROTHIAZIDE [Concomitant]
  6. TYSABRI [Suspect]
     Indication: MULTIPLE SCLEROSIS
     Route: 042
     Dates: start: 20081021, end: 20110819
  7. TRAZODONE HCL [Concomitant]
  8. LIPITOR [Concomitant]
  9. VESICARE [Concomitant]
  10. PROVIGIL [Concomitant]
  11. RISPERIDONE [Concomitant]
  12. DARVOCET [Concomitant]
  13. EFFEXOR [Concomitant]
  14. VITAMIN D [Concomitant]
  15. BACLOFEN [Concomitant]

REACTIONS (1)
  - DYSPLASTIC NAEVUS [None]
